FAERS Safety Report 21300493 (Version 1)
Quarter: 2022Q3

REPORT INFORMATION
  Report Type: Spontaneous
  Country: FR (occurrence: FR)
  Receive Date: 20220907
  Receipt Date: 20220907
  Transmission Date: 20221027
  Serious: Yes (Other)
  Sender: FDA-Public Use
  Company Number: FR-SUN PHARMACEUTICAL INDUSTRIES LTD-2022RR-353893

PATIENT
  Age: 66 Year
  Sex: Male
  Weight: 59 kg

DRUGS (8)
  1. ACETAMINOPHEN [Suspect]
     Active Substance: ACETAMINOPHEN
     Indication: Procedural pain
     Dosage: 1 GRAM, UNK
     Route: 048
     Dates: start: 20210325
  2. KETOPROFEN [Suspect]
     Active Substance: KETOPROFEN
     Indication: General anaesthesia
     Dosage: 100 MILLIGRAM, IN TOTAL
     Route: 040
     Dates: start: 20210325, end: 20210325
  3. TRAMADOL HYDROCHLORIDE [Suspect]
     Active Substance: TRAMADOL HYDROCHLORIDE
     Indication: Procedural pain
     Dosage: 1 GRAM, UNK
     Route: 048
     Dates: start: 20210325
  4. PROPOFOL LIPURO [Suspect]
     Active Substance: PROPOFOL
     Indication: General anaesthesia
     Dosage: 250 MILLIGRAM, IN TOTAL
     Route: 040
     Dates: start: 20210325, end: 20210325
  5. KETAMINE HYDROCHLORIDE [Suspect]
     Active Substance: KETAMINE HYDROCHLORIDE
     Indication: General anaesthesia
     Dosage: 50 MILLIGRAM, IN TOTAL
     Route: 040
     Dates: start: 20210325, end: 20210325
  6. CISATRACURIUM [Suspect]
     Active Substance: CISATRACURIUM
     Indication: General anaesthesia
     Dosage: 14 MILLIGRAM, IN TOTAL
     Route: 040
     Dates: start: 20210325, end: 20210325
  7. KEYTRUDA [Suspect]
     Active Substance: PEMBROLIZUMAB
     Indication: Bronchial carcinoma
     Dosage: 200 MILLIGRAM, CYCLICAL, 6 CYCLES
     Route: 040
     Dates: start: 20201105, end: 20210309
  8. CEFAZOLIN SODIUM [Suspect]
     Active Substance: CEFAZOLIN SODIUM
     Indication: Antibiotic prophylaxis
     Dosage: 1 GRAM, IN TOTAL
     Route: 040
     Dates: start: 20210325, end: 20210325

REACTIONS (1)
  - Cholestatic liver injury [Recovered/Resolved]

NARRATIVE: CASE EVENT DATE: 20220330
